FAERS Safety Report 5405346-6 (Version None)
Quarter: 2007Q3

REPORT INFORMATION
  Report Type: 
  Country: None (occurrence: None)
  Receive Date: 20070803
  Receipt Date: 20070727
  Transmission Date: 20080115
  Serious: Yes (Hospitalization, Other)
  Sender: FDA-Public Use
  Company Number: CA-ELI_LILLY_AND_COMPANY-CA200706000372

PATIENT
  Age: 77 Year
  Sex: Female

DRUGS (14)
  1. FORTEO [Suspect]
     Indication: OSTEOPOROSIS
     Dosage: UNK, UNK
     Dates: start: 20070101
  2. FORTEO [Suspect]
     Dosage: 20 UG, DAILY (1/D)
     Route: 058
     Dates: start: 20070508, end: 20070531
  3. SYNTHROID [Concomitant]
     Dosage: 0.1 MG, UNKNOWN
  4. BISOPROLOL FUMARATE [Concomitant]
     Dosage: 5 MG, UNKNOWN
  5. CLONAZEPAM [Concomitant]
     Dosage: 0.5 MG, UNKNOWN
  6. CLONAZEPAM [Concomitant]
     Dosage: 2 MG, UNKNOWN
  7. ACETAMINOPHEN [Concomitant]
     Dosage: 500 MG, UNKNOWN
  8. CALCIUM CHLORIDE [Concomitant]
     Dosage: 500 MG, UNKNOWN
  9. EURO-D [Concomitant]
  10. CRESTOR [Concomitant]
     Indication: BLOOD CHOLESTEROL
     Dosage: 10 MG, UNKNOWN
     Dates: end: 20070101
  11. NEXIUM [Concomitant]
     Dosage: 40 MG, UNKNOWN
  12. IMODIUM [Concomitant]
  13. AVAPRO [Concomitant]
     Dosage: 150 MG, UNKNOWN
  14. APO-FUROSEMIDE [Concomitant]
     Dosage: 40 MG, UNKNOWN

REACTIONS (5)
  - BONE PAIN [None]
  - CHEST PAIN [None]
  - MUSCLE SPASMS [None]
  - NAUSEA [None]
  - PALPITATIONS [None]
